FAERS Safety Report 6542239-5 (Version None)
Quarter: 2010Q1

REPORT INFORMATION
  Report Type: 
  Country: None (occurrence: None)
  Receive Date: 20100119
  Receipt Date: 20100112
  Transmission Date: 20100710
  Serious: Yes (Hospitalization)
  Sender: FDA-Public Use
  Company Number: B0625995A

PATIENT
  Age: 20 Year
  Sex: Female

DRUGS (1)
  1. AUGMENTIN '125' [Suspect]
     Indication: TONSILLITIS
     Dosage: 1G PER DAY
     Route: 048
     Dates: start: 20100101, end: 20100107

REACTIONS (3)
  - RASH GENERALISED [None]
  - RASH MACULAR [None]
  - WRONG DRUG ADMINISTERED [None]
